FAERS Safety Report 17488692 (Version 1)
Quarter: 2020Q1

REPORT INFORMATION
  Report Type: Spontaneous
  Country: US (occurrence: US)
  Receive Date: 20200220
  Receipt Date: 20200220
  Transmission Date: 20200409
  Serious: Yes (Hospitalization)
  Sender: FDA-Public Use
  Company Number: None

PATIENT
  Age: 69 Year
  Sex: Male
  Weight: 89 kg

DRUGS (1)
  1. SERTRALINE (SERTRALINE HCL 50MG TAB) [Suspect]
     Active Substance: SERTRALINE HYDROCHLORIDE
     Indication: SEIZURE
     Dates: start: 20170625, end: 20170926

REACTIONS (1)
  - Seizure [None]

NARRATIVE: CASE EVENT DATE: 20170926
